FAERS Safety Report 10881658 (Version 1)
Quarter: 2015Q1

REPORT INFORMATION
  Report Type: Report from Study
  Country: PK (occurrence: PK)
  Receive Date: 20150303
  Receipt Date: 20150303
  Transmission Date: 20150721
  Serious: Yes (Hospitalization)
  Sender: FDA-Public Use
  Company Number: PK-SA-2015SA022369

PATIENT
  Age: 55 Year
  Sex: Male
  Weight: 80 kg

DRUGS (3)
  1. SOLOSTAR [Concomitant]
     Active Substance: DEVICE
     Indication: TYPE 2 DIABETES MELLITUS
     Route: 058
     Dates: start: 20150215
  2. LANTUS SOLOSTAR [Suspect]
     Active Substance: INSULIN GLARGINE
     Indication: TYPE 2 DIABETES MELLITUS
     Route: 058
     Dates: start: 20150215
  3. PIOZER [Concomitant]
     Indication: TYPE 2 DIABETES MELLITUS
     Dosage: DOSE: 15/2MG
     Route: 048
     Dates: start: 2015

REACTIONS (6)
  - Injection site haemorrhage [Not Recovered/Not Resolved]
  - Hyperglycaemia [Recovering/Resolving]
  - Blood glucose increased [Not Recovered/Not Resolved]
  - Hypotension [Recovering/Resolving]
  - Syncope [Recovering/Resolving]
  - Loss of consciousness [Recovering/Resolving]

NARRATIVE: CASE EVENT DATE: 201502
